FAERS Safety Report 9492818 (Version 3)
Quarter: 2013Q4

REPORT INFORMATION
  Report Type: Report from Study
  Country: CA (occurrence: CA)
  Receive Date: 20130830
  Receipt Date: 20131114
  Transmission Date: 20140711
  Serious: Yes (Hospitalization)
  Sender: FDA-Public Use
  Company Number: CA-ROCHE-1258883

PATIENT
  Age: 39 Year
  Sex: Female
  Weight: 74.2 kg

DRUGS (9)
  1. RITUXAN [Suspect]
     Indication: CASTLEMAN^S DISEASE
     Route: 042
     Dates: start: 20130801, end: 20130801
  2. PREDNISONE [Concomitant]
  3. NAPROXEN [Concomitant]
  4. PANTOLOC [Concomitant]
  5. TYLENOL [Concomitant]
  6. IMOVANE [Concomitant]
  7. DIPHENHYDRAMINE HYDROCHLORIDE [Concomitant]
     Route: 048
     Dates: start: 20130801, end: 20130801
  8. ACETAMINOPHEN [Concomitant]
     Route: 048
     Dates: start: 20130801, end: 20130801
  9. METHYLPREDNISOLONE [Concomitant]
     Route: 042
     Dates: start: 20130801, end: 20130801

REACTIONS (8)
  - Trismus [Unknown]
  - Arthralgia [Unknown]
  - Pruritus [Unknown]
  - Myalgia [Unknown]
  - Headache [Not Recovered/Not Resolved]
  - Nausea [Not Recovered/Not Resolved]
  - Body temperature increased [Not Recovered/Not Resolved]
  - Rash generalised [Not Recovered/Not Resolved]
